FAERS Safety Report 7579898-4 (Version None)
Quarter: 2011Q2

REPORT INFORMATION
  Report Type: 
  Country: None (occurrence: None)
  Receive Date: 20110629
  Receipt Date: 20110616
  Transmission Date: 20111010
  Serious: Yes (Hospitalization, Other)
  Sender: FDA-Public Use
  Company Number: ES-ELI_LILLY_AND_COMPANY-ES201106004913

PATIENT
  Sex: Female
  Weight: 60 kg

DRUGS (7)
  1. JANUVIA [Concomitant]
     Indication: DIABETES MELLITUS
     Dosage: 1 DF, QD
     Route: 048
  2. OMEPRAZOLE [Concomitant]
     Indication: GASTRIC DISORDER
     Dosage: 20 MG, QD
     Route: 048
  3. LEXATIN [Concomitant]
     Dosage: 3 MG, QD
  4. METFORMIN HCL [Concomitant]
     Indication: DIABETES MELLITUS
     Dosage: 425 MG, QD
     Route: 048
  5. FORTEO [Suspect]
     Indication: OSTEOPOROSIS
     Dosage: 20 UG, QD
     Route: 058
     Dates: start: 20100121
  6. DIGOXIN [Concomitant]
     Indication: TACHYCARDIA
     Dosage: 0.25 MG, QD
     Route: 048
  7. FROSINOR [Concomitant]
     Dosage: 30 MG, QD
     Route: 048

REACTIONS (3)
  - HUMERUS FRACTURE [None]
  - FALL [None]
  - TRANSFUSION [None]
